FAERS Safety Report 4754559-5 (Version None)
Quarter: 2005Q3

REPORT INFORMATION
  Report Type: 
  Country: None (occurrence: None)
  Receive Date: 20050829
  Receipt Date: 20050815
  Transmission Date: 20060218
  Serious: Yes (Other)
  Sender: FDA-Public Use
  Company Number: US-MERCK-0508USA02861

PATIENT
  Age: 62 Year
  Sex: Female

DRUGS (3)
  1. VIOXX [Suspect]
     Route: 048
  2. PREVACID [Concomitant]
     Route: 048
  3. VALIUM [Concomitant]
     Route: 065

REACTIONS (2)
  - CORONARY ARTERY DISEASE [None]
  - MYOCARDIAL INFARCTION [None]
